FAERS Safety Report 8619304-1 (Version None)
Quarter: 2012Q3

REPORT INFORMATION
  Report Type: 
  Country: None (occurrence: None)
  Receive Date: 20120824
  Receipt Date: 20120820
  Transmission Date: 20120928
  Serious: Yes (Death, Other)
  Sender: FDA-Public Use
  Company Number: FR-ASTELLAS-2012US007162

PATIENT
  Sex: Male

DRUGS (4)
  1. ERLOTINIB HYDROCHLORIDE [Suspect]
     Indication: NON-SMALL CELL LUNG CANCER
     Dosage: 150 MG, UID/QD
     Route: 048
  2. CARBOPLATIN [Suspect]
     Indication: NON-SMALL CELL LUNG CANCER
     Dosage: 200 DF, UNKNOWN/D
     Route: 065
     Dates: start: 20120803
  3. PEMETREXED DISODIUM [Suspect]
     Indication: NON-SMALL CELL LUNG CANCER
     Dosage: 200 DF, UNKNOWN/D
     Route: 065
     Dates: start: 20120803
  4. ERLOTINIB HYDROCHLORIDE [Suspect]
     Dosage: 150 MG, UID/QD
     Route: 048
     Dates: start: 20120817

REACTIONS (7)
  - RENAL FAILURE [None]
  - PURPURA [None]
  - DEHYDRATION [None]
  - DERMATITIS ACNEIFORM [None]
  - NEOPLASM MALIGNANT [None]
  - THROMBOCYTOPENIA [None]
  - NEUTROPENIA [None]
